FAERS Safety Report 5964831-9 (Version None)
Quarter: 2008Q4

REPORT INFORMATION
  Report Type: 
  Country: None (occurrence: None)
  Receive Date: 20081120
  Receipt Date: 20081106
  Transmission Date: 20090506
  Serious: Yes (Other)
  Sender: FDA-Public Use
  Company Number: 2008FS0274

PATIENT
  Sex: Male

DRUGS (5)
  1. NITROFURANTOIN [Suspect]
     Dates: start: 20060101, end: 20060901
  2. RAMIPIRL [Concomitant]
  3. AMLODIPINE [Concomitant]
  4. ACETAMINOPHEN [Concomitant]
  5. ALFACALCIDOL [Concomitant]

REACTIONS (3)
  - CATARACT [None]
  - INTRACRANIAL PRESSURE INCREASED [None]
  - OPTIC DISC DISORDER [None]
